FAERS Safety Report 9348438 (Version 1)
Quarter: 2013Q2

REPORT INFORMATION
  Report Type: Spontaneous
  Country: JP (occurrence: CN)
  Receive Date: 20130614
  Receipt Date: 20130614
  Transmission Date: 20140414
  Serious: Yes (Other)
  Sender: FDA-Public Use
  Company Number: CN-B.I. PHARMACEUTICALS,INC./RIDGEFIELD-2013-BI-17036YA

PATIENT
  Age: 69 Year
  Sex: Male

DRUGS (3)
  1. TAMSULOSINA [Suspect]
     Indication: DYSURIA
     Dosage: 0.2 MG
     Route: 048
     Dates: start: 20130601, end: 20130603
  2. TAMSULOSINA [Suspect]
     Indication: LOWER URINARY TRACT SYMPTOMS
  3. TAMSULOSINA [Suspect]
     Indication: BENIGN PROSTATIC HYPERPLASIA

REACTIONS (2)
  - Orthostatic hypotension [Unknown]
  - Dizziness [Recovered/Resolved]
